FAERS Safety Report 25539034 (Version 2)
Quarter: 2025Q4

REPORT INFORMATION
  Report Type: Report from Study
  Country: CL (occurrence: None)
  Receive Date: 20250710
  Receipt Date: 20251204
  Transmission Date: 20260118
  Serious: Yes (Hospitalization, Other)
  Sender: UCB
  Company Number: CL-UCBSA-2025040020

PATIENT
  Age: 73 Year

DRUGS (5)
  1. ROTIGOTINE [Suspect]
     Active Substance: ROTIGOTINE
     Indication: Parkinson^s disease
     Dosage: 4 MILLIGRAM, ONCE DAILY (QD)
  2. ROTIGOTINE [Suspect]
     Active Substance: ROTIGOTINE
     Dosage: 4 MILLIGRAM, ONCE DAILY (QD)
  3. ROTIGOTINE [Suspect]
     Active Substance: ROTIGOTINE
     Dosage: 1 4 MILLIGRAM AND (1/2 4MG PATCH))
  4. ROTIGOTINE [Suspect]
     Active Substance: ROTIGOTINE
     Dosage: 4 MILLIGRAM, ONCE DAILY (QD)
  5. GRIFOPARKIN [Concomitant]
     Indication: Product used for unknown indication
     Dosage: UNK

REACTIONS (8)
  - Cerebrovascular accident [Recovered/Resolved]
  - Cognitive disorder [Recovered/Resolved]
  - Cerebral haemorrhage [Unknown]
  - Weight decreased [Not Recovered/Not Resolved]
  - Energy increased [Recovered/Resolved]
  - Dizziness [Not Recovered/Not Resolved]
  - Nervousness [Unknown]
  - Wrong technique in product usage process [Unknown]
